FAERS Safety Report 4564413-X (Version None)
Quarter: 2005Q1

REPORT INFORMATION
  Report Type: 
  Country: None (occurrence: None)
  Receive Date: 20050128
  Receipt Date: 20031229
  Transmission Date: 20050727
  Serious: No
  Sender: FDA-Public Use
  Company Number: US-GLAXOSMITHKLINE-A0490780A

PATIENT
  Sex: Male

DRUGS (1)
  1. EPIVIR [Suspect]
     Indication: HEPATITIS B
     Dosage: 150MG PER DAY
     Route: 048
     Dates: start: 20021201

REACTIONS (1)
  - HEADACHE [None]
